FAERS Safety Report 12579877 (Version 1)
Quarter: 2016Q3

REPORT INFORMATION
  Report Type: Spontaneous
  Country: US (occurrence: US)
  Receive Date: 20160721
  Receipt Date: 20160721
  Transmission Date: 20161109
  Serious: No
  Sender: FDA-Public Use
  Company Number: US-BEH-2016058069

PATIENT
  Sex: Female
  Weight: 62.6 kg

DRUGS (23)
  1. ZEMAIRA [Suspect]
     Active Substance: .ALPHA.1-PROTEINASE INHIBITOR HUMAN
     Indication: ALPHA-1 ANTI-TRYPSIN DEFICIENCY
     Dosage: 60 MG/KG, QW
     Route: 042
     Dates: start: 20070509
  2. VITAMIN D [Concomitant]
     Active Substance: CHOLECALCIFEROL
  3. METOPROLOL. [Concomitant]
     Active Substance: METOPROLOL
  4. LIDOCAINE / PRILOCAINE [Concomitant]
  5. MULTIVITAMINS [Concomitant]
     Active Substance: VITAMINS
  6. IBUPROFEN. [Concomitant]
     Active Substance: IBUPROFEN
  7. SERTRALINE [Concomitant]
     Active Substance: SERTRALINE HYDROCHLORIDE
  8. EPIPEN [Concomitant]
     Active Substance: EPINEPHRINE
  9. ADVAIR HFA [Concomitant]
     Active Substance: FLUTICASONE PROPIONATE\SALMETEROL XINAFOATE
  10. SIMVASTATIN. [Concomitant]
     Active Substance: SIMVASTATIN
  11. CALCIUM [Concomitant]
     Active Substance: CALCIUM
  12. HEPARIN [Concomitant]
     Active Substance: HEPARIN SODIUM
  13. ALLEGRA [Concomitant]
     Active Substance: FEXOFENADINE HYDROCHLORIDE
  14. SPIRIVA [Concomitant]
     Active Substance: TIOTROPIUM BROMIDE MONOHYDRATE
  15. DIPHENHYDRAMINE. [Concomitant]
     Active Substance: DIPHENHYDRAMINE
  16. LOTRIMIN [Concomitant]
     Active Substance: CLOTRIMAZOLE
  17. FLAXSEED [Concomitant]
     Active Substance: FLAX SEED
  18. MELATONIN [Concomitant]
     Active Substance: MELATONIN
  19. NORMAL SALINE [Concomitant]
     Active Substance: SODIUM CHLORIDE
  20. FIBER [Concomitant]
     Active Substance: PSYLLIUM HUSK
  21. DIOVAN [Concomitant]
     Active Substance: VALSARTAN
  22. FLONASE [Concomitant]
     Active Substance: FLUTICASONE PROPIONATE
  23. ASPIRIN. [Concomitant]
     Active Substance: ASPIRIN

REACTIONS (2)
  - Product use issue [Unknown]
  - Malaise [Unknown]
